FAERS Safety Report 15793295 (Version 1)
Quarter: 2019Q1

REPORT INFORMATION
  Report Type: Spontaneous
  Country: FR (occurrence: FR)
  Receive Date: 20190107
  Receipt Date: 20190107
  Transmission Date: 20190417
  Serious: Yes (Other)
  Sender: FDA-Public Use
  Company Number: FR-BAUSCH-BL-2019-000176

PATIENT
  Age: 69 Year
  Sex: Female

DRUGS (1)
  1. ALDARA [Suspect]
     Active Substance: IMIQUIMOD
     Indication: BASAL CELL CARCINOMA
     Route: 061

REACTIONS (2)
  - Inflammation [Unknown]
  - Infection [Unknown]
